FAERS Safety Report 5607992-3 (Version None)
Quarter: 2008Q1

REPORT INFORMATION
  Report Type: 
  Country: None (occurrence: None)
  Receive Date: 20080130
  Receipt Date: 20080124
  Transmission Date: 20080703
  Serious: Yes (Death, Hospitalization, Other)
  Sender: FDA-Public Use
  Company Number: B0503673B

PATIENT
  Age: 17 Month
  Sex: Male
  Weight: 8.4 kg

DRUGS (3)
  1. LAMIVUDINE [Suspect]
     Indication: HIV INFECTION
     Dosage: 60MG TWICE PER DAY
     Route: 048
     Dates: start: 20070516, end: 20080111
  2. STAVUDINE [Suspect]
     Indication: HIV INFECTION
     Dosage: 30MG TWICE PER DAY
     Route: 048
     Dates: start: 20071107, end: 20080111
  3. NEVIRAPINE [Suspect]
     Indication: HIV INFECTION
     Dosage: 180MG TWICE PER DAY
     Route: 048
     Dates: start: 20070516, end: 20080111

REACTIONS (11)
  - ANAEMIA [None]
  - CARDIAC FAILURE [None]
  - CONVULSION [None]
  - DEATH [None]
  - DIARRHOEA [None]
  - KWASHIORKOR [None]
  - MALAISE [None]
  - NEUTROPENIA [None]
  - PYREXIA [None]
  - SEPSIS [None]
  - THROMBOCYTOPENIA [None]
